FAERS Safety Report 9613623 (Version 1)
Quarter: 2013Q4

REPORT INFORMATION
  Report Type: Spontaneous
  Country: US (occurrence: US)
  Receive Date: 20131010
  Receipt Date: 20131010
  Transmission Date: 20140711
  Serious: No
  Sender: FDA-Public Use
  Company Number: US-TEVA-384099USA

PATIENT
  Sex: Female

DRUGS (1)
  1. SEASONALE [Suspect]

REACTIONS (4)
  - Metrorrhagia [Unknown]
  - Malaise [Unknown]
  - Vomiting [Unknown]
  - Nasopharyngitis [Unknown]
